FAERS Safety Report 25802614 (Version 1)
Quarter: 2025Q3

REPORT INFORMATION
  Report Type: Other
  Country: CA (occurrence: CA)
  Receive Date: 20250915
  Receipt Date: 20250915
  Transmission Date: 20251020
  Serious: Yes (Other)
  Sender: APOTEX
  Company Number: CA-PGRTD-E2B_07903691

PATIENT
  Age: 84 Year
  Sex: Male

DRUGS (1)
  1. IMATINIB [Suspect]
     Active Substance: IMATINIB
     Indication: Chronic myeloid leukaemia
     Route: 048

REACTIONS (8)
  - Drug intolerance [Unknown]
  - Blood cholesterol abnormal [Unknown]
  - Oedema [Unknown]
  - Hypertension [Unknown]
  - Diarrhoea [Unknown]
  - Pneumonia [Unknown]
  - Anaemia [Unknown]
  - Atrial fibrillation [Unknown]
